FAERS Safety Report 7778573-0 (Version None)
Quarter: 2011Q3

REPORT INFORMATION
  Report Type: 
  Country: None (occurrence: None)
  Receive Date: 20110926
  Receipt Date: 20110914
  Transmission Date: 20111222
  Serious: Yes (Hospitalization)
  Sender: FDA-Public Use
  Company Number: US-BAYER-2011-038946

PATIENT
  Age: 21 Year
  Sex: Female
  Weight: 62.585 kg

DRUGS (22)
  1. NASONEX [Concomitant]
  2. LIBRAX [Concomitant]
     Dosage: UNK UNK, PRN
  3. RHINOCORT [Concomitant]
     Indication: HYPERSENSITIVITY
  4. SINGULAIR [Concomitant]
  5. PREVACID [Concomitant]
     Dosage: 30 MG, UNK
     Dates: start: 20050101
  6. YASMIN [Suspect]
     Indication: ACNE
  7. YASMIN [Suspect]
     Indication: PREMENSTRUAL SYNDROME
  8. MAXAIR [Concomitant]
     Dosage: UNK
     Dates: start: 19900101, end: 20000101
  9. ALBUTEROL [Concomitant]
  10. XOPENEX [Concomitant]
  11. AVELOX [Concomitant]
     Dosage: 400 MG, UNK
  12. CLARINEX [Concomitant]
     Indication: HYPERSENSITIVITY
     Dosage: 5 MG, UNK
  13. CLARITIN [Concomitant]
  14. BENZOYL PEROXIDE [Concomitant]
     Dosage: UNK
     Dates: start: 20071017, end: 20071124
  15. ATIVAN [Concomitant]
  16. YASMIN [Suspect]
     Indication: CONTRACEPTION
     Dosage: UNK
     Dates: start: 20070630, end: 20071217
  17. QVAR 40 [Concomitant]
  18. NEXIUM [Concomitant]
     Dosage: UNK UNK, QD
  19. TRILYTE [Concomitant]
     Dosage: UNK
     Dates: start: 20071007
  20. ADVAIR DISKUS 100/50 [Concomitant]
     Indication: ASTHMA
     Dosage: UNK
     Dates: start: 19900101, end: 20000101
  21. PHENERGAN HCL [Concomitant]
  22. ZOFRAN [Concomitant]

REACTIONS (3)
  - CHOLELITHIASIS [None]
  - MENTAL DISORDER [None]
  - CHOLECYSTITIS CHRONIC [None]
